FAERS Safety Report 10291556 (Version 2)
Quarter: 2014Q3

REPORT INFORMATION
  Report Type: Spontaneous
  Country: US (occurrence: US)
  Receive Date: 20140710
  Receipt Date: 20140710
  Transmission Date: 20150326
  Serious: No
  Sender: FDA-Public Use
  Company Number: US-PURDUE-USA-2013-0104974

PATIENT
  Sex: Female
  Weight: 130.16 kg

DRUGS (2)
  1. NORCO [Concomitant]
     Active Substance: ACETAMINOPHEN\HYDROCODONE BITARTRATE
     Indication: BREAKTHROUGH PAIN
     Dosage: 7.5 MG, UNK
     Dates: start: 20130722
  2. BUTRANS [Suspect]
     Active Substance: BUPRENORPHINE
     Indication: SCIATICA
     Dosage: 5 MCG/HR, WEEKLY
     Route: 062
     Dates: start: 20130717, end: 20130722

REACTIONS (2)
  - Skin irritation [Unknown]
  - Application site pain [Unknown]
